FAERS Safety Report 24077626 (Version 1)
Quarter: 2024Q3

REPORT INFORMATION
  Report Type: Report from Study
  Country: JP (occurrence: JP)
  Receive Date: 20240711
  Receipt Date: 20240711
  Transmission Date: 20241017
  Serious: Yes (Other)
  Sender: PIERRE FABRE MEDICAMENT
  Company Number: JP-PFM-2023-02891

PATIENT
  Age: 3 Month

DRUGS (1)
  1. PROPRANOLOL HYDROCHLORIDE [Suspect]
     Active Substance: PROPRANOLOL HYDROCHLORIDE
     Indication: Infantile haemangioma
     Dosage: UNK
     Route: 048

REACTIONS (4)
  - Seizure [Unknown]
  - Hypoglycaemia [Unknown]
  - Product use issue [Unknown]
  - Off label use [Unknown]
